FAERS Safety Report 7959865-9 (Version None)
Quarter: 2011Q4

REPORT INFORMATION
  Report Type: 
  Country: None (occurrence: None)
  Receive Date: 20111206
  Receipt Date: 20110927
  Transmission Date: 20120403
  Serious: Yes (Hospitalization)
  Sender: FDA-Public Use
  Company Number: US-ROCHE-1019175

PATIENT
  Sex: Female
  Weight: 83.082 kg

DRUGS (13)
  1. OMALIZUMAB [Suspect]
     Indication: ASTHMA
     Dosage: 2 INJECTIONS
     Route: 058
     Dates: start: 20110831
  2. FLUTICASONE PROPIONATE [Concomitant]
  3. ASPIRIN [Concomitant]
  4. SUMATRIPTAN [Concomitant]
  5. OMEPRAZOLE [Concomitant]
  6. LOVAZA [Concomitant]
  7. VENTOLIN [Concomitant]
  8. ADVAIR DISKUS 100/50 [Concomitant]
  9. METOPROLOL TARTRATE [Concomitant]
  10. AMITRIPTYLINE HCL [Concomitant]
  11. ALBUTEROL SULFATE AND IPRATROPIUM BROMIDE [Concomitant]
  12. FEXOFENADINE [Concomitant]
  13. SINGULAIR [Concomitant]

REACTIONS (5)
  - CHEST PAIN [None]
  - ASTHMA [None]
  - VOMITING [None]
  - DIARRHOEA [None]
  - SINUSITIS [None]
